FAERS Safety Report 15522945 (Version 1)
Quarter: 2018Q4

REPORT INFORMATION
  Report Type: Spontaneous
  Country: US (occurrence: US)
  Receive Date: 20181017
  Receipt Date: 20181017
  Transmission Date: 20190205
  Serious: Yes (Hospitalization, Other)
  Sender: FDA-Public Use
  Company Number: US-DSJP-DSU-2017-146328

PATIENT

DRUGS (1)
  1. BENICAR HCT [Suspect]
     Active Substance: HYDROCHLOROTHIAZIDE\OLMESARTAN MEDOXOMIL
     Indication: PRODUCT USED FOR UNKNOWN INDICATION
     Dosage: 40-25 MG, QD
     Route: 048
     Dates: start: 20090225

REACTIONS (6)
  - Diverticulitis [Unknown]
  - Gastrooesophageal reflux disease [Not Recovered/Not Resolved]
  - Haemorrhoids [Unknown]
  - Constipation [Unknown]
  - Rectal polyp [Unknown]
  - Sprue-like enteropathy [Recovering/Resolving]

NARRATIVE: CASE EVENT DATE: 20090225
